FAERS Safety Report 15157968 (Version 1)
Quarter: 2018Q3

REPORT INFORMATION
  Report Type: Spontaneous
  Country: US (occurrence: US)
  Receive Date: 20180718
  Receipt Date: 20180718
  Transmission Date: 20181010
  Serious: No
  Sender: FDA-Public Use
  Company Number: US-CIPLA LTD.-2017US10398

PATIENT

DRUGS (18)
  1. ESOMEPRAZOLE [Concomitant]
     Active Substance: ESOMEPRAZOLE
     Dosage: 40 MG, QD
     Route: 048
  2. CEPHALEXIN. [Concomitant]
     Active Substance: CEPHALEXIN
     Dosage: 500 MG, 4 CAPSULES 1 HOUR PRIOR TO DENTAL APPOINTMENT
     Route: 065
  3. DICLOFENAC [Concomitant]
     Active Substance: DICLOFENAC
     Dosage: 1 %, APPLY 4 GMS EVERY 6 HOURS AS NEEDED
     Route: 065
  4. ULORIC [Concomitant]
     Active Substance: FEBUXOSTAT
     Dosage: 80 MG, TAKE ONE TABLET BY MOUTH DAILY
     Route: 048
  5. ULORIC [Concomitant]
     Active Substance: FEBUXOSTAT
     Dosage: 40 MG, ONE TABLET EVERY OTHER DAY
     Route: 048
  6. ANDROGEL [Concomitant]
     Active Substance: TESTOSTERONE
     Dosage: 1.62% PUMP, 4 PUMPS ONCE A DAY
     Route: 062
  7. HYDROCODONE/ACETAMINOPHEN [Concomitant]
     Active Substance: ACETAMINOPHEN\HYDROCODONE
     Dosage: 5?325 MG, MAXIMUM DOSE IS 2 TABLETS
     Route: 065
  8. METHYLPREDNISOLONE. [Concomitant]
     Active Substance: METHYLPREDNISOLONE
     Dosage: 4 MG, USE AS DIRECTED ON PACKAGE
     Route: 065
  9. SPIRONOLACTONE. [Concomitant]
     Active Substance: SPIRONOLACTONE
     Dosage: 25 MG, ONE HALF TABLET ONCE A DAY
     Route: 048
  10. CLINDAMYCIN. [Concomitant]
     Active Substance: CLINDAMYCIN
     Dosage: 1.2?5%, APPLY ONCE A DAY AS DIRECTED
     Route: 065
  11. AMOXICILLIN/CLAVULONIC ACID [Concomitant]
     Dosage: 875/125 MG, ONE TABLET EVERY 12 HOURS
     Route: 048
  12. VALSARTAN. [Concomitant]
     Active Substance: VALSARTAN
     Dosage: 80 MG, QD
  13. ESZOPICLONE. [Concomitant]
     Active Substance: ESZOPICLONE
     Dosage: 3 MG, 1 TABLET IMMEDIATELY BEFORE BEDTIME ONCE A DAY AS NEEDED
     Route: 065
  14. PREDNISONE. [Concomitant]
     Active Substance: PREDNISONE
     Dosage: 10 MG, ONE TABLET 3 TIMES DAILY
     Route: 048
  15. BD ULTRAFINE NANO [Concomitant]
     Dosage: UNK, USE FOR EACH INJECTION 1 X DAILY
     Route: 065
  16. WARFARIN [Suspect]
     Active Substance: WARFARIN
     Indication: ANTIPLATELET THERAPY
     Dosage: 5 MG, ONE AND HALF TABLET (7.5 MG) DAILY
     Route: 048
     Dates: start: 20170508
  17. FUROSEMIDE. [Concomitant]
     Active Substance: FUROSEMIDE
     Dosage: 40 MG, TWO TABLETS IN THE MORNING AND ONE TABLET IN THE EVENING
     Route: 065
  18. VICTOZA PREFILLED PEN [Concomitant]
     Dosage: 3 MG, INJECT 1.8 MG ONCE A DAY
     Route: 058

REACTIONS (1)
  - International normalised ratio decreased [Unknown]
